FAERS Safety Report 5329431-2 (Version None)
Quarter: 2007Q2

REPORT INFORMATION
  Report Type: 
  Country: None (occurrence: None)
  Receive Date: 20070220
  Receipt Date: 20060123
  Transmission Date: 20071010
  Serious: Yes (Other)
  Sender: FDA-Public Use
  Company Number: HQWYE579331JAN06

PATIENT
  Age: 43 Year
  Sex: Female
  Weight: 61.29 kg

DRUGS (1)
  1. CHILDREN'S ADVIL [Suspect]
     Indication: DRUG USE FOR UNKNOWN INDICATION
     Dosage: 1 TABLET
     Dates: start: 20060123, end: 20060123

REACTIONS (1)
  - THROAT IRRITATION [None]
